FAERS Safety Report 9739092 (Version 1)
Quarter: 2013Q4

REPORT INFORMATION
  Report Type: Spontaneous
  Country: CA (occurrence: US)
  Receive Date: 20131209
  Receipt Date: 20131209
  Transmission Date: 20140711
  Serious: Yes (Other)
  Sender: FDA-Public Use
  Company Number: CA-JNJFOC-20131117137

PATIENT
  Age: 65 Year
  Sex: Female
  Weight: 62.6 kg

DRUGS (2)
  1. BENADRYL ALLERGY KAPGELS [Suspect]
     Indication: HEADACHE
     Dosage: 1 KAPGEL 2 OR 3 TIMES
     Route: 048
  2. BENADRYL ALLERGY KAPGELS [Suspect]
     Indication: INSOMNIA
     Dosage: 1 KAPGEL 2 OR 3 TIMES
     Route: 048

REACTIONS (4)
  - Formication [Recovered/Resolved]
  - Dysuria [Recovered/Resolved]
  - Off label use [Unknown]
  - Pruritus [Recovered/Resolved]
